FAERS Safety Report 15315147 (Version 1)
Quarter: 2018Q3

REPORT INFORMATION
  Report Type: Spontaneous
  Country: US (occurrence: US)
  Receive Date: 20180824
  Receipt Date: 20180824
  Transmission Date: 20181010
  Serious: No
  Sender: FDA-Public Use
  Company Number: US-PFIZER INC-2018336195

PATIENT
  Age: 73 Year
  Sex: Male
  Weight: 77.11 kg

DRUGS (2)
  1. VIAGRA [Suspect]
     Active Substance: SILDENAFIL CITRATE
     Indication: ERECTILE DYSFUNCTION
     Dosage: 50 MG, UNK (CUT IT IN HALF; PUT ONE HALF UNDER THE TONGUE AND PUT THE OTHER 1/2 ON TOP OF TONGUE)
     Route: 048
  2. VIAGRA [Interacting]
     Active Substance: SILDENAFIL CITRATE
     Dosage: 50 MG, UNK (CUT IT IN HALF; PUT ONE HALF UNDER THE TONGUE AND PUT THE OTHER 1/2 ON TOP OF TONGUE)
     Route: 060

REACTIONS (4)
  - Wrong technique in product usage process [Unknown]
  - Drug effect increased [Unknown]
  - Incorrect route of drug administration [Unknown]
  - Food interaction [Unknown]
